FAERS Safety Report 23111328 (Version 4)
Quarter: 2024Q1

REPORT INFORMATION
  Report Type: Report from Study
  Country: US (occurrence: US)
  Receive Date: 20231026
  Receipt Date: 20240109
  Transmission Date: 20240410
  Serious: Yes (Other)
  Sender: FDA-Public Use
  Company Number: US-UCBSA-2023028043

PATIENT
  Sex: Female
  Weight: 66.22 kg

DRUGS (13)
  1. FINTEPLA [Suspect]
     Active Substance: FENFLURAMINE
     Indication: Lennox-Gastaut syndrome
     Dosage: 6 MILLILITER, 2X/DAY (BID)
     Dates: start: 20230502
  2. FINTEPLA [Suspect]
     Active Substance: FENFLURAMINE
     Dosage: EXTRA DOSE ADMINISTERED
     Dates: start: 20230601, end: 20230601
  3. FINTEPLA [Suspect]
     Active Substance: FENFLURAMINE
     Dosage: 6 MILLILITER, 2X/DAY (BID)
     Dates: start: 2023
  4. FINTEPLA [Suspect]
     Active Substance: FENFLURAMINE
     Dosage: 5 MILLILITER, 2X/DAY (BID)
     Dates: start: 2023
  5. FINTEPLA [Suspect]
     Active Substance: FENFLURAMINE
     Dosage: 4 MILLILITER, 2X/DAY (BID)
     Dates: start: 2023
  6. FINTEPLA [Suspect]
     Active Substance: FENFLURAMINE
     Dosage: 3 MILLILITER, 2X/DAY (BID)
     Dates: start: 20231011
  7. FINTEPLA [Suspect]
     Active Substance: FENFLURAMINE
     Dosage: 3 MILLILITER, 2X/DAY (BID)
  8. VITAMIN D3 [Concomitant]
     Active Substance: CHOLECALCIFEROL
     Indication: Product used for unknown indication
     Dosage: 1 SOFTGEL (50 MICROGRAM; DAILY)
  9. NORDIC NATURALS OMEGA 3 [Concomitant]
     Indication: Product used for unknown indication
     Dosage: 1280 MILLIGRAM, ONCE DAILY (QD)
  10. EPIDIOLEX [Concomitant]
     Active Substance: CANNABIDIOL
     Indication: Product used for unknown indication
     Dosage: 6 MILLILITER, 2X/DAY (BID)
  11. LAMICTAL XR [Concomitant]
     Active Substance: LAMOTRIGINE
     Indication: Product used for unknown indication
     Dosage: 250 MILLIGRAM, 2X/DAY (BID)
  12. XCOPRI [Concomitant]
     Active Substance: CENOBAMATE
     Indication: Product used for unknown indication
     Dosage: 200 MILLIGRAM, ONCE NIGHTLY
  13. FLUOXETINE [Concomitant]
     Active Substance: FLUOXETINE HYDROCHLORIDE
     Indication: Product used for unknown indication
     Dosage: 20 MILLIGRAM, EV 2 DAYS (QOD)

REACTIONS (3)
  - Seizure [Recovering/Resolving]
  - Lethargy [Recovered/Resolved]
  - Extra dose administered [Unknown]

NARRATIVE: CASE EVENT DATE: 20230101
